FAERS Safety Report 6901021-7 (Version None)
Quarter: 2010Q3

REPORT INFORMATION
  Report Type: 
  Country: None (occurrence: None)
  Receive Date: 20100730
  Receipt Date: 20100721
  Transmission Date: 20110219
  Serious: Yes (Hospitalization)
  Sender: FDA-Public Use
  Company Number: 016133

PATIENT
  Sex: Female
  Weight: 67 kg

DRUGS (1)
  1. CIMZIA [Suspect]
     Indication: RHEUMATOID ARTHRITIS
     Dosage: 200MG 1X/2WEEK SUBCUTANEOUS
     Route: 058
     Dates: start: 20100428, end: 20100721

REACTIONS (1)
  - PNEUMONIA [None]
